FAERS Safety Report 7681372-1 (Version None)
Quarter: 2011Q3

REPORT INFORMATION
  Report Type: 
  Country: None (occurrence: None)
  Receive Date: 20110812
  Receipt Date: 20110729
  Transmission Date: 20111222
  Serious: Yes (Hospitalization, Other)
  Sender: FDA-Public Use
  Company Number: PHHY2011BR69357

PATIENT
  Sex: Female

DRUGS (2)
  1. OMEPRAZOLE [Concomitant]
     Dosage: UNK UKN, UNK
  2. DIOVAN HCT [Suspect]
     Indication: HYPERTENSION
     Dosage: 1 TABLET A DAY (IN THE MORNING)
     Route: 048

REACTIONS (4)
  - DIABETES MELLITUS [None]
  - DYSPNOEA [None]
  - EMPHYSEMA [None]
  - PNEUMONIA [None]
